FAERS Safety Report 12077409 (Version 1)
Quarter: 2016Q1

REPORT INFORMATION
  Report Type: Spontaneous
  Country: FR (occurrence: FR)
  Receive Date: 20160215
  Receipt Date: 20160215
  Transmission Date: 20160526
  Serious: Yes (Hospitalization)
  Sender: FDA-Public Use
  Company Number: FR-ELI_LILLY_AND_COMPANY-FR201602001511

PATIENT
  Age: 40 Year
  Sex: Male

DRUGS (13)
  1. ZYPREXA [Suspect]
     Active Substance: OLANZAPINE
     Indication: BIPOLAR DISORDER
     Dosage: 40 MG, UNK
     Route: 065
     Dates: start: 2015, end: 2015
  2. DEPAKOTE [Concomitant]
     Active Substance: DIVALPROEX SODIUM
     Dosage: UNK
     Dates: start: 2015, end: 2015
  3. ZYPREXA [Suspect]
     Active Substance: OLANZAPINE
     Indication: HYPOMANIA
  4. ABILIFY [Concomitant]
     Active Substance: ARIPIPRAZOLE
     Dosage: UNK
     Dates: start: 2015, end: 2015
  5. ZYPADHERA [Suspect]
     Active Substance: OLANZAPINE PAMOATE
     Indication: BIPOLAR DISORDER
     Dosage: 300 MG, 2/M
     Dates: start: 2015, end: 2015
  6. ZYPADHERA [Suspect]
     Active Substance: OLANZAPINE PAMOATE
     Indication: HYPOMANIA
  7. RISPERDAL [Suspect]
     Active Substance: RISPERIDONE
     Indication: PRODUCT USED FOR UNKNOWN INDICATION
     Dosage: UNK
     Route: 065
  8. TEMESTA                            /00273201/ [Concomitant]
     Active Substance: LORAZEPAM
     Dosage: UNK
     Dates: start: 2015, end: 2015
  9. LOXAPAC                            /00401801/ [Concomitant]
     Active Substance: LOXAPINE SUCCINATE
     Dosage: UNK
     Dates: start: 2015, end: 2015
  10. XEPLION [Concomitant]
     Active Substance: PALIPERIDONE PALMITATE
     Dosage: UNK
     Dates: start: 2015, end: 2015
  11. XEROQUEL [Concomitant]
     Active Substance: QUETIAPINE FUMARATE
     Dosage: UNK
     Dates: start: 2015, end: 2015
  12. RISPERDAL [Concomitant]
     Active Substance: RISPERIDONE
     Dosage: UNK
     Dates: start: 2015, end: 2015
  13. ZYPREXA [Suspect]
     Active Substance: OLANZAPINE
     Indication: PRODUCT USED FOR UNKNOWN INDICATION
     Route: 065

REACTIONS (11)
  - Infarction [Unknown]
  - Agitation [Unknown]
  - Aggression [Unknown]
  - Personality disorder [Unknown]
  - Amnesia [Unknown]
  - Akathisia [Unknown]
  - Off label use [Recovered/Resolved]
  - Anger [Unknown]
  - Cognitive disorder [Unknown]
  - Overdose [Recovered/Resolved]
  - Mania [Unknown]
